FAERS Safety Report 8102513-8 (Version None)
Quarter: 2012Q1

REPORT INFORMATION
  Report Type: 
  Country: None (occurrence: None)
  Receive Date: 20120126
  Receipt Date: 20120112
  Transmission Date: 20120608
  Serious: Yes (Disabling, Other)
  Sender: FDA-Public Use
  Company Number: 2012P1002634

PATIENT
  Sex: Female

DRUGS (1)
  1. METOCLOPRAMIDE [Suspect]

REACTIONS (7)
  - MULTIPLE INJURIES [None]
  - ANXIETY [None]
  - ANHEDONIA [None]
  - TARDIVE DYSKINESIA [None]
  - PAIN [None]
  - INCORRECT DRUG ADMINISTRATION DURATION [None]
  - ACTIVITIES OF DAILY LIVING IMPAIRED [None]
